FAERS Safety Report 9180742 (Version 3)
Quarter: 2013Q2

REPORT INFORMATION
  Report Type: Spontaneous
  Country: US (occurrence: US)
  Receive Date: 20130322
  Receipt Date: 20130605
  Transmission Date: 20140414
  Serious: Yes (Other)
  Sender: FDA-Public Use
  Company Number: US-JNJFOC-20130307537

PATIENT
  Age: 80 Year
  Sex: Female
  Weight: 53.52 kg

DRUGS (6)
  1. XARELTO [Suspect]
     Indication: CEREBROVASCULAR ACCIDENT PROPHYLAXIS
     Route: 048
     Dates: start: 20130130
  2. XARELTO [Suspect]
     Indication: ATRIAL FIBRILLATION
     Route: 048
     Dates: start: 20130130
  3. BYSTOLIC [Concomitant]
     Indication: BLOOD PRESSURE
     Route: 048
     Dates: start: 20130130, end: 201302
  4. BYSTOLIC [Concomitant]
     Indication: BLOOD PRESSURE
     Route: 048
     Dates: start: 201302
  5. PRESERVISION [Concomitant]
     Indication: MACULAR DEGENERATION
     Route: 065
     Dates: start: 2011
  6. FOLIC ACID [Concomitant]
     Route: 048
     Dates: start: 20130219

REACTIONS (1)
  - Epistaxis [Recovering/Resolving]
